FAERS Safety Report 9033193 (Version 2)
Quarter: 2013Q1

REPORT INFORMATION
  Report Type: Spontaneous
  Country: CO (occurrence: CO)
  Receive Date: 20130128
  Receipt Date: 20130129
  Transmission Date: 20140127
  Serious: Yes (Life-Threatening, Hospitalization)
  Sender: FDA-Public Use
  Company Number: CO-ASTRAZENECA-2013SE05461

PATIENT
  Age: 72 Year
  Sex: Male

DRUGS (36)
  1. BRILINTA [Suspect]
     Route: 048
     Dates: start: 20120901
  2. INSULIN LANTUS [Concomitant]
     Dosage: 34 IU/DAY
     Route: 058
  3. INSULIN LANTUS [Concomitant]
     Dosage: 36 IU/DAY
     Route: 058
  4. CLOPIDOGREL [Concomitant]
  5. LOSARTAN [Concomitant]
  6. CARVEDILOL [Concomitant]
  7. CARVEDILOL [Concomitant]
  8. FUROSEMIDE [Concomitant]
  9. CLONAZEPAM [Concomitant]
  10. TRIMETAZIDINE [Concomitant]
  11. METFORMIN [Concomitant]
     Dosage: 850 MCG/12H
  12. ASA [Concomitant]
  13. ASA [Concomitant]
  14. ATORVASTATIN [Concomitant]
  15. RANITIDINE [Concomitant]
  16. RANITIDINE [Concomitant]
  17. CITALOPRAM [Concomitant]
  18. ENOXAPARINE [Concomitant]
     Dosage: 1MG/KG/BID
  19. BISACODYL [Concomitant]
  20. DIGOXIN [Concomitant]
  21. VITORIN [Concomitant]
  22. B-IPRATROPIUM [Concomitant]
  23. BISOPROLOL [Concomitant]
  24. AMIODARONE [Concomitant]
     Dosage: 200 MG VO TID FOR 2 DAYS AND THEN 200MG/DAY
  25. AMIODARONE [Concomitant]
  26. AMIODARONE [Concomitant]
  27. HYOSCINE N BUTHYL BROMIDE [Concomitant]
  28. METOCLOPRAMIDE [Concomitant]
  29. ISOSORBIDE [Concomitant]
     Route: 060
  30. ISOSORBIDE DINITRATE [Concomitant]
  31. LORAZEPAM [Concomitant]
  32. MAGNESIUM SULPHATE [Concomitant]
  33. CHLORIDE POTASSIUM [Concomitant]
  34. MORPHINE [Concomitant]
     Dosage: 10MG/ML
  35. METOPROLOL [Concomitant]
     Dosage: 5MG/5ML
  36. CARBAMAZEPINE [Concomitant]
     Dosage: 200

REACTIONS (23)
  - Acute myocardial infarction [Recovered/Resolved]
  - Cholelithiasis [Recovered/Resolved]
  - Cholecystitis [Recovered/Resolved]
  - Acute coronary syndrome [Unknown]
  - Hypertensive cardiomyopathy [Unknown]
  - Hypertensive heart disease [Unknown]
  - Atrial fibrillation [Unknown]
  - Cardiac failure [Unknown]
  - Electrolyte imbalance [Unknown]
  - Hyponatraemia [Unknown]
  - Hypokalaemia [Unknown]
  - Hyperkalaemia [Unknown]
  - Anxiety [Recovered/Resolved]
  - Feeling hot [Recovered/Resolved]
  - Fatigue [Recovered/Resolved]
  - Metabolic syndrome [Unknown]
  - Type 2 diabetes mellitus [Unknown]
  - Dyslipidaemia [Unknown]
  - Obesity [Unknown]
  - Hypertension [Unknown]
  - Peripheral arterial occlusive disease [Unknown]
  - Fall [Unknown]
  - Dyspnoea [Unknown]
